FAERS Safety Report 8346754-3 (Version None)
Quarter: 2012Q2

REPORT INFORMATION
  Report Type: 
  Country: None (occurrence: None)
  Receive Date: 20120509
  Receipt Date: 20120503
  Transmission Date: 20120825
  Serious: Yes (Hospitalization)
  Sender: FDA-Public Use
  Company Number: SE-SANOFI-AVENTIS-2012SA031531

PATIENT
  Age: 89 Year
  Sex: Male

DRUGS (6)
  1. DIGOXIN [Suspect]
     Indication: MYOCARDIAL DEPRESSION
     Route: 065
     Dates: end: 20120226
  2. CLAFORAN [Suspect]
     Route: 065
     Dates: start: 20120226, end: 20120301
  3. ACETAMINOPHEN [Concomitant]
  4. GABAPENTIN [Concomitant]
  5. ATENOLOL [Concomitant]
  6. WARFARIN SODIUM [Suspect]
     Indication: ATRIAL FIBRILLATION
     Dosage: 2.5 MG TAB
     Route: 065

REACTIONS (3)
  - DRUG LEVEL INCREASED [None]
  - DIARRHOEA INFECTIOUS [None]
  - GASTROINTESTINAL HAEMORRHAGE [None]
